FAERS Safety Report 18757788 (Version 1)
Quarter: 2021Q1

REPORT INFORMATION
  Report Type: Spontaneous
  Country: US (occurrence: US)
  Receive Date: 20210119
  Receipt Date: 20210119
  Transmission Date: 20210419
  Serious: Yes (Other)
  Sender: FDA-Public Use
  Company Number: US-ASTRAZENECA-2021A009535

PATIENT
  Sex: Female

DRUGS (1)
  1. FASENRA [Suspect]
     Active Substance: BENRALIZUMAB
     Indication: ASTHMA
     Route: 065
     Dates: start: 202009

REACTIONS (7)
  - Feeling abnormal [Unknown]
  - Headache [Unknown]
  - Fear [Unknown]
  - Head discomfort [Unknown]
  - Loss of consciousness [Unknown]
  - Neoplasm [Unknown]
  - Dizziness [Unknown]
